FAERS Safety Report 8433337-X (Version None)
Quarter: 2012Q2

REPORT INFORMATION
  Report Type: 
  Country: None (occurrence: None)
  Receive Date: 20120607
  Receipt Date: 20120530
  Transmission Date: 20120825
  Serious: Yes (Death)
  Sender: FDA-Public Use
  Company Number: 217447

PATIENT
  Age: 74 Year
  Sex: Male
  Weight: 78 kg

DRUGS (5)
  1. DACARBAZINE [Concomitant]
  2. ATENOLOL [Concomitant]
  3. INNOHEP [Suspect]
     Indication: DEEP VEIN THROMBOSIS
     Dosage: 15000 IU (15000 IU, 1 IN 1 D), SUBCUTANEOUS
     Route: 058
     Dates: start: 20120424
  4. DEXAMETHASONE [Concomitant]
  5. GUTALAX (SODIUM PICOSULFATE) [Concomitant]

REACTIONS (6)
  - METASTATIC MALIGNANT MELANOMA [None]
  - CONSTIPATION [None]
  - NEOPLASM PROGRESSION [None]
  - CONVULSION [None]
  - INTRACRANIAL PRESSURE INCREASED [None]
  - CEREBRAL HAEMORRHAGE [None]
